FAERS Safety Report 9625381 (Version 2)
Quarter: 2013Q4

REPORT INFORMATION
  Report Type: Spontaneous
  Country: US (occurrence: US)
  Receive Date: 20131016
  Receipt Date: 20131127
  Transmission Date: 20140711
  Serious: Yes (Hospitalization)
  Sender: FDA-Public Use
  Company Number: US-PFIZER INC-2013293966

PATIENT
  Age: 52 Year
  Sex: Female

DRUGS (3)
  1. XELJANZ [Suspect]
     Indication: RHEUMATOID ARTHRITIS
     Dosage: 5 MG 1 TABLET, 2X/DAY
     Route: 048
     Dates: start: 20130201, end: 201306
  2. ARAVA [Concomitant]
     Dosage: 20 MG, 1X/DAY (QD)
  3. METHOTREXATE [Concomitant]
     Dosage: 25 MG, WEEKLY

REACTIONS (2)
  - Sepsis [Recovered/Resolved]
  - Pneumonia [Unknown]
